FAERS Safety Report 17502460 (Version 1)
Quarter: 2020Q1

REPORT INFORMATION
  Report Type: Spontaneous
  Country: DE (occurrence: DE)
  Receive Date: 20200305
  Receipt Date: 20200305
  Transmission Date: 20200409
  Serious: Yes (Death, Hospitalization)
  Sender: FDA-Public Use
  Company Number: DE-TAKEDA-2020TUS012825

PATIENT
  Age: 68 Year
  Sex: Male

DRUGS (7)
  1. PANTOZOL [Concomitant]
     Active Substance: PANTOPRAZOLE SODIUM
     Dosage: 40 MILLIGRAM, QD
     Route: 048
  2. PIPAMPERONE [Concomitant]
     Active Substance: PIPAMPERONE
     Indication: AGITATION
     Dosage: 40 MILLIGRAM, QD
     Route: 048
  3. DEXAMETHASONE. [Concomitant]
     Active Substance: DEXAMETHASONE
     Dosage: UNK
     Route: 048
  4. RISPERIDON [Concomitant]
     Active Substance: RISPERIDONE
     Indication: AGITATION
     Dosage: UNK
     Route: 048
  5. VELCADE [Suspect]
     Active Substance: BORTEZOMIB
     Indication: PLASMA CELL MYELOMA
     Dosage: 1.3 MILLIGRAM/SQ. METER
     Route: 058
     Dates: start: 20191121
  6. ACICLOVIR [Concomitant]
     Active Substance: ACYCLOVIR
     Dosage: 400 MILLIGRAM, QD
     Route: 048
  7. SEVELAMER [Concomitant]
     Active Substance: SEVELAMER
     Indication: RENAL FAILURE
     Dosage: 1200 MILLIGRAM, QD
     Route: 048

REACTIONS (2)
  - Hypotension [Fatal]
  - Autonomic neuropathy [Fatal]

NARRATIVE: CASE EVENT DATE: 20191217
